FAERS Safety Report 25905432 (Version 2)
Quarter: 2025Q4

REPORT INFORMATION
  Report Type: Report from Study
  Country: US (occurrence: US)
  Receive Date: 20251010
  Receipt Date: 20251230
  Transmission Date: 20260117
  Serious: No
  Sender: AVERITAS
  Company Number: US-GRUNENTHAL-2025-123635

PATIENT
  Age: 80 Year
  Sex: Male

DRUGS (2)
  1. QUTENZA [Suspect]
     Active Substance: CAPSAICIN
     Indication: Diabetic neuropathy
     Dosage: UNK
     Route: 061
     Dates: start: 20250917, end: 20250917
  2. QUTENZA [Suspect]
     Active Substance: CAPSAICIN
     Dosage: UNK
     Route: 061

REACTIONS (3)
  - Pain [Not Recovered/Not Resolved]
  - Feeling hot [Unknown]
  - Pain [Unknown]

NARRATIVE: CASE EVENT DATE: 20250917
